FAERS Safety Report 5877651-0 (Version None)
Quarter: 2008Q3

REPORT INFORMATION
  Report Type: 
  Country: None (occurrence: None)
  Receive Date: 20080911
  Receipt Date: 20080902
  Transmission Date: 20090109
  Serious: Yes (Other)
  Sender: FDA-Public Use
  Company Number: IT-ALLERGAN-0811064US

PATIENT
  Sex: Female

DRUGS (8)
  1. BOTOX [Suspect]
     Indication: AURICULOTEMPORAL SYNDROME
     Dosage: UNK, SINGLE
     Route: 003
  2. BOTOX [Suspect]
     Dosage: UNK, SINGLE
     Route: 003
  3. BOTOX [Suspect]
     Dosage: UNK, SINGLE
     Route: 003
  4. BOTOX [Suspect]
     Dosage: UNK, SINGLE
     Route: 003
  5. BOTOX [Suspect]
     Dosage: UNK, SINGLE
     Route: 003
  6. BOTOX [Suspect]
     Dosage: UNK, SINGLE
     Route: 003
  7. BOTOX [Suspect]
     Dosage: UNK, SINGLE
     Route: 003
  8. BOTOX [Suspect]
     Dosage: UNK, SINGLE
     Route: 003

REACTIONS (4)
  - FLUSHING [None]
  - INJECTION SITE PAIN [None]
  - PARESIS [None]
  - THERAPEUTIC RESPONSE DECREASED [None]
